FAERS Safety Report 10650860 (Version 1)
Quarter: 2014Q4

REPORT INFORMATION
  Report Type: Report from Study
  Country: FR (occurrence: FR)
  Receive Date: 20141215
  Receipt Date: 20141215
  Transmission Date: 20150529
  Serious: Yes (Hospitalization)
  Sender: FDA-Public Use
  Company Number: FR-ROCHE-1502632

PATIENT
  Age: 56 Year
  Sex: Male
  Weight: 83 kg

DRUGS (17)
  1. OBINUTUZUMAB [Suspect]
     Active Substance: OBINUTUZUMAB
     Indication: DIFFUSE LARGE B-CELL LYMPHOMA
     Dosage: FREQUENCY AS PER PROTOCOL (4 CYCLES IN INDUCTION PHASE). ?LAST DOSE PRIOR TO MUCOSITIS ON 24/NOV/201
     Route: 065
     Dates: start: 20141006
  2. VINDESINE [Suspect]
     Active Substance: VINDESINE
     Indication: LYMPHOMA
  3. PREDNISONE. [Suspect]
     Active Substance: PREDNISONE
     Indication: LYMPHOMA
  4. OBINUTUZUMAB [Suspect]
     Active Substance: OBINUTUZUMAB
     Indication: LYMPHOMA
  5. CYCLOPHOSPHAMIDE. [Suspect]
     Active Substance: CYCLOPHOSPHAMIDE
     Indication: NON-HODGKIN^S LYMPHOMA
     Dosage: FREQUENCY  AND DOSE UNIT AS PER PROTOCOL (4 CYCLES IN INDUCTION PHASE)
     Route: 065
     Dates: start: 20141006
  6. VINDESINE [Suspect]
     Active Substance: VINDESINE
     Indication: NON-HODGKIN^S LYMPHOMA
     Dosage: FREQUENCY  AND DOSE UNIT AS PER PROTOCOL (4 CYCLES IN INDUCTION PHASE)
     Route: 065
     Dates: start: 20141006
  7. PREDNISONE. [Suspect]
     Active Substance: PREDNISONE
     Indication: NON-HODGKIN^S LYMPHOMA
     Dosage: FREQUENCY  AND DOSE UNIT AS PER PROTOCOL (4 CYCLES IN INDUCTION PHASE).
     Route: 065
     Dates: start: 20141006
  8. BLEOMYCIN [Suspect]
     Active Substance: BLEOMYCIN SULFATE
     Indication: NON-HODGKIN^S LYMPHOMA
     Dosage: FREQUENCY  AND DOSE UNIT AS PER PROTOCOL (4 CYCLES IN INDUCTION PHASE). 10MG TOTAL DOSE.
     Route: 065
     Dates: start: 20141006
  9. PREDNISONE. [Suspect]
     Active Substance: PREDNISONE
     Indication: DIFFUSE LARGE B-CELL LYMPHOMA
  10. DOXORUBICIN [Suspect]
     Active Substance: DOXORUBICIN
     Indication: NON-HODGKIN^S LYMPHOMA
     Dosage: FREQUENCY  AND DOSE UNIT AS PER PROTOCOL (4 CYCLES IN INDUCTION PHASE)
     Route: 065
     Dates: start: 20141006
  11. CYCLOPHOSPHAMIDE. [Suspect]
     Active Substance: CYCLOPHOSPHAMIDE
     Indication: DIFFUSE LARGE B-CELL LYMPHOMA
  12. VINDESINE [Suspect]
     Active Substance: VINDESINE
     Indication: DIFFUSE LARGE B-CELL LYMPHOMA
  13. CYCLOPHOSPHAMIDE. [Suspect]
     Active Substance: CYCLOPHOSPHAMIDE
     Indication: LYMPHOMA
  14. BLEOMYCIN [Suspect]
     Active Substance: BLEOMYCIN SULFATE
     Indication: DIFFUSE LARGE B-CELL LYMPHOMA
  15. DOXORUBICIN [Suspect]
     Active Substance: DOXORUBICIN
     Indication: DIFFUSE LARGE B-CELL LYMPHOMA
  16. DOXORUBICIN [Suspect]
     Active Substance: DOXORUBICIN
     Indication: LYMPHOMA
  17. BLEOMYCIN [Suspect]
     Active Substance: BLEOMYCIN SULFATE
     Indication: LYMPHOMA

REACTIONS (1)
  - Mucosal inflammation [Not Recovered/Not Resolved]

NARRATIVE: CASE EVENT DATE: 20141203
